FAERS Safety Report 22005857 (Version 1)
Quarter: 2023Q1

REPORT INFORMATION
  Report Type: Spontaneous
  Country: US (occurrence: US)
  Receive Date: 20230217
  Receipt Date: 20230217
  Transmission Date: 20230418
  Serious: Yes (Death, Hospitalization)
  Sender: FDA-Public Use
  Company Number: US-MYLANLABS-2023M1018242

PATIENT
  Age: 81 Year
  Sex: Male

DRUGS (5)
  1. ANAGRELIDE [Suspect]
     Active Substance: ANAGRELIDE
     Indication: Essential thrombocythaemia
     Dosage: UNK; TEMPORARILY STOPPED 2 WEEKS
     Route: 065
  2. ANAGRELIDE [Suspect]
     Active Substance: ANAGRELIDE
     Indication: Essential thrombocythaemia
     Dosage: 1 MILLIGRAM, BID
     Route: 065
  3. ASPIRIN [Concomitant]
     Active Substance: ASPIRIN
     Indication: Peripheral arterial occlusive disease
     Dosage: UNK
     Route: 065
  4. APIXABAN [Concomitant]
     Active Substance: APIXABAN
     Indication: Peripheral arterial occlusive disease
     Dosage: 2.5 MILLIGRAM
     Route: 065
  5. HYDROXYUREA [Concomitant]
     Active Substance: HYDROXYUREA
     Indication: Essential thrombocythaemia
     Dosage: UNK
     Route: 065

REACTIONS (7)
  - Cardiomyopathy [Fatal]
  - Cardiac arrest [Fatal]
  - Acute myocardial infarction [Fatal]
  - Respiratory failure [Recovering/Resolving]
  - Cardiac failure congestive [Unknown]
  - Ejection fraction decreased [Unknown]
  - Diastolic dysfunction [Unknown]
